FAERS Safety Report 7331288-5 (Version None)
Quarter: 2011Q1

REPORT INFORMATION
  Report Type: 
  Country: None (occurrence: None)
  Receive Date: 20110304
  Receipt Date: 20110223
  Transmission Date: 20110831
  Serious: Yes (Hospitalization)
  Sender: FDA-Public Use
  Company Number: US-JNJFOC-20100905821

PATIENT
  Sex: Female
  Weight: 120.2 kg

DRUGS (6)
  1. EFFEXOR [Concomitant]
  2. ENTOCORT EC [Concomitant]
  3. BELLADONNA TINCTURE [Concomitant]
  4. LORAZEPAM [Concomitant]
  5. REMICADE [Suspect]
     Indication: CROHN'S DISEASE
     Route: 042
  6. FLOMAX [Concomitant]

REACTIONS (6)
  - CROHN'S DISEASE [None]
  - DEVICE RELATED INFECTION [None]
  - INFECTION [None]
  - COLECTOMY [None]
  - CONDITION AGGRAVATED [None]
  - HYPOKALAEMIA [None]
